APPROVED DRUG PRODUCT: PROGESTERONE
Active Ingredient: PROGESTERONE
Strength: 50MG/ML
Dosage Form/Route: INJECTABLE;INJECTION
Application: A215634 | Product #001 | TE Code: AO
Applicant: XIROMED PHARMA ESPANA SL
Approved: Jan 5, 2022 | RLD: No | RS: No | Type: RX